FAERS Safety Report 19144701 (Version 2)
Quarter: 2021Q2

REPORT INFORMATION
  Report Type: Spontaneous
  Country: PK (occurrence: PK)
  Receive Date: 20210416
  Receipt Date: 20210505
  Transmission Date: 20210717
  Serious: Yes (Hospitalization, Other)
  Sender: FDA-Public Use
  Company Number: PK-NOVOPROD-802681

PATIENT
  Age: 28 Year
  Sex: Female
  Weight: 83 kg

DRUGS (1)
  1. NOVOMIX 30 FLEXPEN [Suspect]
     Active Substance: INSULIN ASPART
     Indication: TYPE 2 DIABETES MELLITUS
     Dosage: 50 IU, QD (30+20 IU/DAY)
     Route: 058
     Dates: start: 20180223, end: 20210405

REACTIONS (3)
  - Abortion spontaneous [Not Recovered/Not Resolved]
  - Diabetes mellitus inadequate control [Unknown]
  - Maternal exposure during pregnancy [Recovered/Resolved]

NARRATIVE: CASE EVENT DATE: 20210405
